FAERS Safety Report 7347383-0 (Version None)
Quarter: 2011Q1

REPORT INFORMATION
  Report Type: 
  Country: None (occurrence: None)
  Receive Date: 20110311
  Receipt Date: 20110304
  Transmission Date: 20110831
  Serious: Yes (Death)
  Sender: FDA-Public Use
  Company Number: IN-ROCHE-764019

PATIENT

DRUGS (1)
  1. OSELTAMIVIR [Suspect]
     Indication: H1N1 INFLUENZA
     Route: 065

REACTIONS (2)
  - DRUG INEFFECTIVE [None]
  - DEATH [None]
